FAERS Safety Report 17157527 (Version 1)
Quarter: 2019Q4

REPORT INFORMATION
  Report Type: Spontaneous
  Country: US (occurrence: US)
  Receive Date: 20191213
  Receipt Date: 20191213
  Transmission Date: 20200122
  Serious: Yes (Other)
  Sender: FDA-Public Use
  Company Number: None

PATIENT
  Age: 22 Year
  Sex: Female
  Weight: 65.25 kg

DRUGS (2)
  1. MONISTAT 3 [Suspect]
     Active Substance: MICONAZOLE NITRATE
     Indication: FUNGAL INFECTION
     Route: 067
  2. PRENATAL GUMMIES (NATURE VALLEY) [Concomitant]

REACTIONS (2)
  - Vaginal haemorrhage [None]
  - Exposure during pregnancy [None]

NARRATIVE: CASE EVENT DATE: 20191211
